FAERS Safety Report 24302634 (Version 1)
Quarter: 2024Q3

REPORT INFORMATION
  Report Type: Spontaneous
  Country: CN (occurrence: CN)
  Receive Date: 20240910
  Receipt Date: 20240910
  Transmission Date: 20241016
  Serious: Yes (Life-Threatening)
  Sender: PFIZER
  Company Number: CN-PFIZER INC-PV202400117425

PATIENT
  Age: 33 Year
  Sex: Female
  Weight: 47.1 kg

DRUGS (1)
  1. METHOTREXATE SODIUM [Suspect]
     Active Substance: METHOTREXATE SODIUM
     Indication: Ectopic pregnancy
     Dosage: 70 MG, 1X/DAY
     Route: 041
     Dates: start: 20240902, end: 20240902

REACTIONS (4)
  - Dizziness [Recovering/Resolving]
  - Nausea [Recovering/Resolving]
  - Syncope [Recovering/Resolving]
  - Off label use [Unknown]

NARRATIVE: CASE EVENT DATE: 20240902
